FAERS Safety Report 5358122-7 (Version None)
Quarter: 2007Q2

REPORT INFORMATION
  Report Type: 
  Country: None (occurrence: None)
  Receive Date: 20070530
  Receipt Date: 20061023
  Transmission Date: 20071010
  Serious: Yes (Other)
  Sender: FDA-Public Use
  Company Number: US200606000063

PATIENT
  Age: 37 Year
  Sex: Male
  Weight: 82.5 kg

DRUGS (4)
  1. ZYPREXA [Suspect]
     Dates: end: 19990101
  2. RISPERDAL /SWE/ (RISPERIDONE) [Concomitant]
  3. HALDOL SOLUTAB [Concomitant]
  4. DIVALPROEX SODIUM [Concomitant]

REACTIONS (4)
  - DIABETES MELLITUS [None]
  - DIABETIC COMA [None]
  - HYPERTENSION [None]
  - METABOLIC DISORDER [None]
